FAERS Safety Report 5416450-0 (Version None)
Quarter: 2007Q3

REPORT INFORMATION
  Report Type: 
  Country: None (occurrence: None)
  Receive Date: 20070720
  Receipt Date: 20070720
  Transmission Date: 20080115
  Serious: Yes (Disabling)
  Sender: FDA-Public Use
  Company Number: None

PATIENT
  Age: 46 Year
  Sex: Female
  Weight: 62.5964 kg

DRUGS (2)
  1. CREST PRO-HEALTH RINSE CREST [Suspect]
     Indication: DENTAL PLAQUE
     Dosage: TWICE DAILY PO
     Route: 048
     Dates: start: 20070622, end: 20070715
  2. CREST PRO-HEALTH RINSE CREST [Suspect]
     Indication: PROPHYLAXIS
     Dosage: TWICE DAILY PO
     Route: 048
     Dates: start: 20070622, end: 20070715

REACTIONS (2)
  - PHARMACEUTICAL PRODUCT COMPLAINT [None]
  - TOOTH DISCOLOURATION [None]
